FAERS Safety Report 16390430 (Version 1)
Quarter: 2019Q2

REPORT INFORMATION
  Report Type: Report from Study
  Country: CH (occurrence: AU)
  Receive Date: 20190604
  Receipt Date: 20190604
  Transmission Date: 20190711
  Serious: Yes (Other)
  Sender: FDA-Public Use
  Company Number: CH-PFIZER INC-2019228699

PATIENT
  Age: 36 Year
  Sex: Male

DRUGS (2)
  1. THEBAINE [Suspect]
     Active Substance: THEBAINE
     Dosage: UNK
  2. MORPHINE SULFATE. [Suspect]
     Active Substance: MORPHINE SULFATE
     Dosage: UNK

REACTIONS (4)
  - Occupational dermatitis [Unknown]
  - Type I hypersensitivity [Unknown]
  - Occupational exposure to product [Unknown]
  - Dermatitis contact [Unknown]
